FAERS Safety Report 5261348-4 (Version None)
Quarter: 2007Q1

REPORT INFORMATION
  Report Type: 
  Country: None (occurrence: None)
  Receive Date: 20070307
  Receipt Date: 20070301
  Transmission Date: 20070707
  Serious: Yes (Death)
  Sender: FDA-Public Use
  Company Number: S07-USA-00973-01

PATIENT
  Age: 68 Year
  Sex: Male

DRUGS (4)
  1. LEXAPRO [Suspect]
     Indication: ANXIETY
     Dosage: 10 MG QD PO
     Route: 048
     Dates: start: 20070206, end: 20070207
  2. LEXAPRO [Suspect]
     Indication: DEPRESSION
     Dosage: 10 MG QD PO
     Route: 048
     Dates: start: 20070206, end: 20070207
  3. COUMADIN [Concomitant]
  4. ATIVAN [Concomitant]

REACTIONS (8)
  - ANXIETY [None]
  - COMPLETED SUICIDE [None]
  - CONDITION AGGRAVATED [None]
  - GUN SHOT WOUND [None]
  - HEAD INJURY [None]
  - HYPERHIDROSIS [None]
  - INSOMNIA [None]
  - SUICIDAL BEHAVIOUR [None]
